FAERS Safety Report 6172851-7 (Version None)
Quarter: 2009Q2

REPORT INFORMATION
  Report Type: 
  Country: None (occurrence: None)
  Receive Date: 20090428
  Receipt Date: 20090414
  Transmission Date: 20091009
  Serious: Yes (Life-Threatening)
  Sender: FDA-Public Use
  Company Number: 2009-01474

PATIENT
  Age: 61 Year
  Sex: Male

DRUGS (9)
  1. VELCADE [Suspect]
     Indication: MULTIPLE MYELOMA
     Dosage: 3.5 MG,
     Dates: start: 20090209, end: 20090216
  2. VALACYCLOVIR HCL [Suspect]
     Indication: DRUG USE FOR UNKNOWN INDICATION
  3. CALCIDOSE(CALCIUM CARBONATE) [Suspect]
     Indication: DRUG USE FOR UNKNOWN INDICATION
  4. TAZOCILLINE(PIPERACILLIN SODIUM, TAZOBACTAM SODIUM) [Suspect]
     Indication: DRUG USE FOR UNKNOWN INDICATION
  5. OFLOXACIN [Suspect]
     Indication: DRUG USE FOR UNKNOWN INDICATION
  6. LASIX [Suspect]
     Indication: DRUG USE FOR UNKNOWN INDICATION
  7. CALCIPARINE [Suspect]
     Indication: DRUG USE FOR UNKNOWN INDICATION
  8. PANTOPRAZOLE SODIUM [Suspect]
     Indication: DRUG USE FOR UNKNOWN INDICATION
  9. FOLIC ACID [Suspect]
     Indication: DRUG USE FOR UNKNOWN INDICATION

REACTIONS (10)
  - BLOOD LACTATE DEHYDROGENASE INCREASED [None]
  - CONDITION AGGRAVATED [None]
  - ENCEPHALOPATHY [None]
  - HAEMODIALYSIS [None]
  - HYPERKALAEMIA [None]
  - HYPERPHOSPHATAEMIA [None]
  - HYPOCALCAEMIA [None]
  - MYOCLONUS [None]
  - RENAL FAILURE [None]
  - TUMOUR LYSIS SYNDROME [None]
